FAERS Safety Report 18021745 (Version 1)
Quarter: 2020Q3

REPORT INFORMATION
  Report Type: Spontaneous
  Country: US (occurrence: US)
  Receive Date: 20200714
  Receipt Date: 20200714
  Transmission Date: 20201103
  Serious: Yes (Other)
  Sender: FDA-Public Use
  Company Number: US-JNJFOC-20200705418

PATIENT
  Sex: Female

DRUGS (1)
  1. SPRAVATO [Suspect]
     Active Substance: ESKETAMINE
     Indication: PRODUCT USED FOR UNKNOWN INDICATION

REACTIONS (8)
  - Hallucination, visual [Unknown]
  - Confusional state [Unknown]
  - Social avoidant behaviour [Unknown]
  - Dizziness [Unknown]
  - Headache [Unknown]
  - Sensory loss [Unknown]
  - Head discomfort [Unknown]
  - Feeling abnormal [Unknown]
